FAERS Safety Report 4951765-1 (Version None)
Quarter: 2006Q1

REPORT INFORMATION
  Report Type: 
  Country: None (occurrence: None)
  Receive Date: 20060322
  Receipt Date: 20060322
  Transmission Date: 20060701
  Serious: Yes (Hospitalization)
  Sender: FDA-Public Use
  Company Number: None

PATIENT
  Age: 59 Year
  Sex: Female
  Weight: 68.0396 kg

DRUGS (1)
  1. FACTIVE [Suspect]
     Indication: BRONCHITIS
     Dosage: 320 MG ONCE DAILY PO
     Route: 048
     Dates: start: 20060309, end: 20060310

REACTIONS (2)
  - DRUG HYPERSENSITIVITY [None]
  - RHEUMATOID ARTHRITIS [None]
